FAERS Safety Report 25383046 (Version 1)
Quarter: 2025Q2

REPORT INFORMATION
  Report Type: Spontaneous
  Country: US (occurrence: US)
  Receive Date: 20250602
  Receipt Date: 20250602
  Transmission Date: 20250716
  Serious: No
  Sender: ROCHE
  Company Number: US-ROCHE-10000298134

PATIENT
  Sex: Female
  Weight: 68.49 kg

DRUGS (3)
  1. ACTEMRA [Suspect]
     Active Substance: TOCILIZUMAB
     Indication: Rheumatoid arthritis
     Dosage: STRENGTH : 162MG/0.9M
     Route: 058
     Dates: start: 202502
  2. ACTEMRA [Suspect]
     Active Substance: TOCILIZUMAB
  3. CEFUROXIME AXETIL [Concomitant]
     Active Substance: CEFUROXIME AXETIL

REACTIONS (2)
  - Urinary tract infection [Unknown]
  - White blood cell count decreased [Unknown]
